FAERS Safety Report 24041133 (Version 1)
Quarter: 2024Q3

REPORT INFORMATION
  Report Type: Spontaneous
  Country: US (occurrence: US)
  Receive Date: 20240702
  Receipt Date: 20240702
  Transmission Date: 20241017
  Serious: Yes (Death, Other)
  Sender: AMGEN
  Company Number: US-AMGEN-USASP2024126254

PATIENT

DRUGS (8)
  1. PREDNISONE [Suspect]
     Active Substance: PREDNISONE
     Indication: Hodgkin^s disease
     Dosage: UNK, Q3WK (EVERY 21 DAYS)
     Route: 065
  2. FILGRASTIM [Suspect]
     Active Substance: FILGRASTIM
     Indication: Hodgkin^s disease
     Dosage: UNK, Q3WK (EVERY 21 DAYS)
     Route: 065
  3. BRENTUXIMAB VEDOTIN [Concomitant]
     Active Substance: BRENTUXIMAB VEDOTIN
     Indication: Hodgkin^s disease
     Dosage: 1.8 MILLIGRAM/KILOGRAM, Q3WK (EVERY 21 DAYS) 5 CYCLES
  4. DOXORUBICIN [Concomitant]
     Active Substance: DOXORUBICIN
     Indication: Hodgkin^s disease
     Dosage: UNK, Q3WK (EVERY 21 DAYS)
  5. VINCRISTINE [Concomitant]
     Active Substance: VINCRISTINE
     Indication: Hodgkin^s disease
     Dosage: UNK, Q3WK (EVERY 21 DAYS)
  6. ETOPOSIDE [Concomitant]
     Active Substance: ETOPOSIDE
     Indication: Hodgkin^s disease
     Dosage: UNK, Q3WK (EVERY 21 DAYS)
  7. CYCLOPHOSPHAMIDE [Concomitant]
     Active Substance: CYCLOPHOSPHAMIDE
     Indication: Hodgkin^s disease
     Dosage: UNK, Q3WK (EVERY 21 DAYS)
  8. BLEOMYCIN [Concomitant]
     Active Substance: BLEOMYCIN SULFATE
     Indication: Hodgkin^s disease
     Dosage: UNK, Q3WK (EVERY 21 DAYS)

REACTIONS (18)
  - Neuropathy peripheral [Unknown]
  - Road traffic accident [Fatal]
  - Adverse event [Unknown]
  - Febrile neutropenia [Unknown]
  - Sepsis [Unknown]
  - Enterocolitis [Unknown]
  - Colitis [Unknown]
  - Pneumonitis [Unknown]
  - Anaphylactic reaction [Unknown]
  - Embolism [Unknown]
  - Pancreatitis [Unknown]
  - Mucosal inflammation [Unknown]
  - Oral disorder [Unknown]
  - Constipation [Unknown]
  - Hypersensitivity [Unknown]
  - Infusion related reaction [Unknown]
  - Vascular access complication [Unknown]
  - Alanine aminotransferase increased [Unknown]
